FAERS Safety Report 19206765 (Version 2)
Quarter: 2021Q2

REPORT INFORMATION
  Report Type: Spontaneous
  Country: US (occurrence: US)
  Receive Date: 20210503
  Receipt Date: 20210513
  Transmission Date: 20210717
  Serious: Yes (Other)
  Sender: FDA-Public Use
  Company Number: US-PFIZER INC-2021457063

PATIENT
  Age: 44 Year
  Sex: Male

DRUGS (7)
  1. HUMIRA [Suspect]
     Active Substance: ADALIMUMAB
     Indication: UVEITIS
  2. XELJANZ XR [Suspect]
     Active Substance: TOFACITINIB CITRATE
     Indication: PSORIATIC ARTHROPATHY
  3. HUMIRA [Suspect]
     Active Substance: ADALIMUMAB
     Indication: PSORIATIC ARTHROPATHY
     Dosage: UNK
     Route: 058
  4. HUMIRA [Suspect]
     Active Substance: ADALIMUMAB
     Indication: COLITIS ULCERATIVE
  5. HUMIRA [Suspect]
     Active Substance: ADALIMUMAB
     Indication: ANGIOLIPOMA
  6. HUMIRA [Suspect]
     Active Substance: ADALIMUMAB
     Indication: SEBORRHOEIC KERATOSIS
  7. XELJANZ XR [Suspect]
     Active Substance: TOFACITINIB CITRATE
     Indication: COLITIS ULCERATIVE
     Dosage: 11 MG, DAILY (1 D)
     Route: 048
     Dates: start: 202012

REACTIONS (8)
  - Pain [Recovering/Resolving]
  - Suspected COVID-19 [Unknown]
  - Reye^s syndrome [Unknown]
  - Headache [Unknown]
  - Hypertension [Recovering/Resolving]
  - Inner ear inflammation [Unknown]
  - Fatigue [Unknown]
  - Uveitis [Unknown]

NARRATIVE: CASE EVENT DATE: 2011
